FAERS Safety Report 8250861-3 (Version None)
Quarter: 2012Q2

REPORT INFORMATION
  Report Type: 
  Country: None (occurrence: None)
  Receive Date: 20120402
  Receipt Date: 20120329
  Transmission Date: 20120825
  Serious: Yes (Death, Hospitalization, Other)
  Sender: FDA-Public Use
  Company Number: PHHO2009KR13901

PATIENT
  Sex: Male
  Weight: 52 kg

DRUGS (1)
  1. EVEROLIMUS [Suspect]
     Indication: METASTATIC RENAL CELL CARCINOMA
     Dosage: 10 MG, QD
     Route: 048
     Dates: start: 20090123, end: 20090811

REACTIONS (10)
  - LUNG DISORDER [None]
  - VENTRICULAR TACHYCARDIA [None]
  - METASTASES TO LUNG [None]
  - CEREBRAL INFARCTION [None]
  - PNEUMONITIS CHEMICAL [None]
  - ANAEMIA [None]
  - LUNG CONSOLIDATION [None]
  - CONVULSION [None]
  - DYSPNOEA [None]
  - NEOPLASM MALIGNANT [None]
